FAERS Safety Report 9366084 (Version 1)
Quarter: 2013Q2

REPORT INFORMATION
  Report Type: Spontaneous
  Country: CO (occurrence: CO)
  Receive Date: 20130625
  Receipt Date: 20130625
  Transmission Date: 20140414
  Serious: Yes (Hospitalization)
  Sender: FDA-Public Use
  Company Number: CO-PFIZER INC-2013188833

PATIENT
  Age: 71 Year
  Sex: Male

DRUGS (2)
  1. NORVAS [Suspect]
     Dosage: 5 MG, 1X/DAY
     Route: 048
     Dates: start: 2012
  2. LOSARTAN [Concomitant]
     Indication: HYPERTENSION
     Dosage: 50 MG, 2X/DAY
     Route: 048
     Dates: start: 2008

REACTIONS (1)
  - Anaemia [Not Recovered/Not Resolved]
